FAERS Safety Report 7747156-0 (Version None)
Quarter: 2011Q3

REPORT INFORMATION
  Report Type: 
  Country: None (occurrence: None)
  Receive Date: 20110907
  Receipt Date: 20110824
  Transmission Date: 20111222
  Serious: Yes (Hospitalization)
  Sender: FDA-Public Use
  Company Number: 2011-349

PATIENT
  Age: 55 Year
  Sex: Male
  Weight: 92.2 kg

DRUGS (2)
  1. PRIALT [Suspect]
     Dosage: UG, ONCE/HOUR, INTRATHECAL
     Route: 037
  2. SUFENTANIL CITRATE [Suspect]
     Dosage: UG, ONCE/HOUR, INTRATHECAL
     Route: 037

REACTIONS (5)
  - APHASIA [None]
  - BLINDNESS [None]
  - BALANCE DISORDER [None]
  - DEAFNESS [None]
  - HYPOAESTHESIA [None]
